FAERS Safety Report 6841021-9 (Version None)
Quarter: 2010Q3

REPORT INFORMATION
  Report Type: 
  Country: None (occurrence: None)
  Receive Date: 20100714
  Receipt Date: 20070625
  Transmission Date: 20110219
  Serious: Yes (Other)
  Sender: FDA-Public Use
  Company Number: US-PFIZER INC-2007053173

PATIENT
  Sex: Female
  Weight: 95.3 kg

DRUGS (4)
  1. CHANTIX [Suspect]
     Dates: start: 20070301
  2. CELEBREX [Concomitant]
  3. SYNTHROID [Concomitant]
  4. WELLBUTRIN [Concomitant]

REACTIONS (2)
  - DIABETES MELLITUS [None]
  - STOMATITIS [None]
